FAERS Safety Report 9201658 (Version 2)
Quarter: 2013Q2

REPORT INFORMATION
  Report Type: Spontaneous
  Country: BR (occurrence: BR)
  Receive Date: 20130401
  Receipt Date: 20130412
  Transmission Date: 20140414
  Serious: Yes (Hospitalization, Other)
  Sender: FDA-Public Use
  Company Number: PHHY2013BR018722

PATIENT
  Age: 50 Year
  Sex: Female
  Weight: 48 kg

DRUGS (9)
  1. FORASEQ [Suspect]
     Indication: ASTHMA
     Dosage: 1 DF (1 CAPSULE OF EACH TREATMENT), BID
     Dates: start: 2011
  2. POLARAMINE [Suspect]
     Indication: SINUSITIS
     Dosage: UNK UKN, UNK
  3. POLARAMINE [Suspect]
     Indication: RHINITIS
  4. PURAN T4 [Concomitant]
     Indication: HYPOTHYROIDISM
     Dosage: 1 DF, DAILY
     Route: 048
  5. PROPANOLOL [Concomitant]
     Indication: HYPERTENSION
     Dosage: 2 DF, DAILY
     Route: 048
  6. CAPTOPRIL [Concomitant]
     Indication: HYPERTENSION
     Dosage: 3 DF, DAILY
     Route: 048
  7. CLORANA [Concomitant]
     Indication: HYPERTENSION
     Dosage: 1 DF, DAILY
     Route: 048
  8. DIAZEPAN [Concomitant]
     Indication: PANIC DISORDER
     Dosage: 2 DF, DAILY
     Route: 048
  9. FLUOXETINE [Concomitant]
     Indication: DEPRESSION
     Dosage: 1 DF, DAILY
     Route: 048

REACTIONS (6)
  - Pneumonia [Recovered/Resolved]
  - White blood cell count increased [Unknown]
  - Panic reaction [Recovered/Resolved]
  - Sinusitis [Recovered/Resolved]
  - Rhinitis [Recovered/Resolved]
  - Device malfunction [Unknown]
